FAERS Safety Report 18684932 (Version 4)
Quarter: 2023Q2

REPORT INFORMATION
  Report Type: Report from Study
  Country: GB (occurrence: GB)
  Receive Date: 20201230
  Receipt Date: 20230418
  Transmission Date: 20230722
  Serious: Yes (Hospitalization, Other)
  Sender: FDA-Public Use
  Company Number: GB-ROCHE-2420864

PATIENT
  Age: 73 Year
  Sex: Female

DRUGS (40)
  1. ANASTROZOLE [Suspect]
     Active Substance: ANASTROZOLE
     Indication: Breast cancer metastatic
     Dosage: 1 MILLIGRAM, QD (START DATE: 12-OCT-2016)
     Route: 048
  2. TRASTUZUMAB [Suspect]
     Active Substance: TRASTUZUMAB
     Indication: Breast cancer metastatic
     Dosage: 1 DOSAGE FORM, Q3W
     Route: 042
     Dates: start: 20160516, end: 20160610
  3. TRASTUZUMAB [Suspect]
     Active Substance: TRASTUZUMAB
     Dosage: 525 MILLIGRAM, Q3W
     Route: 042
     Dates: start: 20160701, end: 20160812
  4. TRASTUZUMAB [Suspect]
     Active Substance: TRASTUZUMAB
     Dosage: 504 MILLIGRAM, Q3W (START AND STOP DATE: 02-SEP-2016)
     Route: 042
  5. TRASTUZUMAB [Suspect]
     Active Substance: TRASTUZUMAB
     Dosage: 493 MILLIGRAM, Q3W (START AND STOP DATE: 23-SEP-2016)
     Route: 042
  6. TRASTUZUMAB [Suspect]
     Active Substance: TRASTUZUMAB
     Dosage: 483 MILLIGRAM, Q3W (START: 18-OCT-2016 AND STOP: 28-APR-2017)
     Route: 042
  7. TRASTUZUMAB [Suspect]
     Active Substance: TRASTUZUMAB
     Dosage: 504 MILLIGRAM, Q3W (START DATE: 22-MAY-2017 AND STOP DATE: 19-FEB-2018)
     Route: 042
  8. TRASTUZUMAB [Suspect]
     Active Substance: TRASTUZUMAB
     Dosage: 1 DOSAGE FORM, Q3W (START DATE: 12-MAR-2018 AND STOP DATE: 30-APR-2018)
     Route: 042
  9. TRASTUZUMAB [Suspect]
     Active Substance: TRASTUZUMAB
     Dosage: 546 MILLIGRAM, Q3W (START: 21-MAY-2018, STOP: 03-SEP-2018)
     Route: 042
  10. TRASTUZUMAB [Suspect]
     Active Substance: TRASTUZUMAB
     Dosage: 504 MILLIGRAM, Q3W (START DATE: 10-JUN-2019 AND STOP DATE: 02-SEP-2019)
     Route: 042
  11. TRASTUZUMAB [Suspect]
     Active Substance: TRASTUZUMAB
     Dosage: 588 MILLIGRAM (START: 24-SEP-2018, STOP: 20-MAY-2019)
     Route: 042
  12. TRASTUZUMAB [Suspect]
     Active Substance: TRASTUZUMAB
     Dosage: 525 MILLIGRAM, Q3W (START: 12-MAR-2018 AND STOP: 30-APR-2018)
     Route: 042
  13. TRASTUZUMAB [Suspect]
     Active Substance: TRASTUZUMAB
     Dosage: 588 MILLIGRAM, Q3W (START DATE: 15-OCT-2019)
     Route: 042
  14. TRASTUZUMAB [Suspect]
     Active Substance: TRASTUZUMAB
     Dosage: 483 MILLIGRAM, Q3W (START: 18-OCT-2016 AND STOP: 28-APR-2017)
     Route: 042
  15. TRASTUZUMAB [Suspect]
     Active Substance: TRASTUZUMAB
     Dosage: 588 MILLIGRAM, Q3W (START DATE: 24-SEP-2018 AND STOP DATE: 20-MAY-2019)
     Route: 042
  16. DOCETAXEL [Suspect]
     Active Substance: DOCETAXEL
     Indication: Breast cancer metastatic
     Dosage: 140 MILLIGRAM, Q3W
     Route: 042
     Dates: start: 20160701, end: 20160902
  17. DOCETAXEL [Suspect]
     Active Substance: DOCETAXEL
     Dosage: 1 DOSAGE FORM, Q3W
     Route: 042
     Dates: start: 20160516, end: 20160610
  18. PERTUZUMAB [Suspect]
     Active Substance: PERTUZUMAB
     Indication: Breast cancer metastatic
     Dosage: UNK
     Route: 042
     Dates: start: 20160516, end: 20160610
  19. PERTUZUMAB [Suspect]
     Active Substance: PERTUZUMAB
     Dosage: 420 MILLIGRAM, Q3W
     Route: 042
     Dates: start: 20160701, end: 20161215
  20. PERTUZUMAB [Suspect]
     Active Substance: PERTUZUMAB
     Dosage: 420 MILLIGRAM, Q3W (START DATE: 17-FEB-2021)
     Route: 042
  21. PERTUZUMAB [Suspect]
     Active Substance: PERTUZUMAB
     Dosage: 840 MILLIGRAM (START: 27-JAN-2021, DATE OF LAST ADMIN: 27-JAN-2021)
     Route: 042
  22. ONTRUZANT [Suspect]
     Active Substance: TRASTUZUMAB-DTTB
     Indication: Product used for unknown indication
     Dosage: 588 MILLIGRAM, Q3W (START DATE: 24-SEP-2018)
     Route: 042
  23. TAXOTERE [Suspect]
     Active Substance: DOCETAXEL
     Indication: Product used for unknown indication
     Dosage: 1 DOSAGE FORM, Q3W
     Route: 042
     Dates: start: 20160516, end: 20160610
  24. TAXOTERE [Suspect]
     Active Substance: DOCETAXEL
     Dosage: 140 MILLIGRAM, Q3W
     Route: 042
     Dates: start: 20160701, end: 20160902
  25. METOCLOPRAMIDE [Concomitant]
     Active Substance: METOCLOPRAMIDE
     Indication: Product used for unknown indication
     Dosage: UNK (10 MG QD AS NECESSARY)
     Route: 048
     Dates: start: 20160701, end: 20160902
  26. LOSEC [Concomitant]
     Active Substance: OMEPRAZOLE
     Indication: Product used for unknown indication
     Dosage: 10 MILLIGRAM, QD
     Route: 048
  27. HYPROMELLOSES [Concomitant]
     Active Substance: HYPROMELLOSES
     Indication: Eye pain
     Dosage: UNK (START DATE: 31-AUG-2016 AND STOP DATE: 12-OCT-2016)
     Route: 047
  28. CHLORPHENIRAMINE MALEATE [Concomitant]
     Active Substance: CHLORPHENIRAMINE MALEATE
     Indication: Product used for unknown indication
     Dosage: 10 MILLIGRAM, QW
     Route: 042
     Dates: start: 20160701, end: 20160902
  29. BENZYDAMINE [Concomitant]
     Active Substance: BENZYDAMINE
     Indication: Product used for unknown indication
     Dosage: 10 MILLILITER, QD
     Route: 048
     Dates: start: 20160701, end: 20160902
  30. BENZYDAMINE [Concomitant]
     Active Substance: BENZYDAMINE
     Dosage: 10 MILLILITER, 0.25 DAY
     Route: 048
     Dates: start: 20160701
  31. DENOSUMAB [Concomitant]
     Active Substance: DENOSUMAB
     Indication: Product used for unknown indication
     Dosage: UNK (EVERY 6 WEEKLY)
     Route: 058
  32. LOPERAMIDE [Concomitant]
     Active Substance: LOPERAMIDE
     Indication: Diarrhoea
     Dosage: UNK (START DATE: 31-AUG-2016 AND STOP DATE: 12-OCT-2016)
     Route: 048
  33. ONDANSETRON [Concomitant]
     Active Substance: ONDANSETRON
     Indication: Nausea
     Dosage: 4 MILLIGRAM (START DATE: 12-OCT-2016 AND STOP DATE: 09-NOV-2016)
     Route: 048
  34. SERTRALINE [Concomitant]
     Active Substance: SERTRALINE HYDROCHLORIDE
     Indication: Product used for unknown indication
     Dosage: 50 MILLIGRAM, QD
     Route: 048
  35. CHLORPHENIRAMINE MALEATE [Concomitant]
     Active Substance: CHLORPHENIRAMINE MALEATE
     Indication: Pruritus
     Dosage: UNK (START DATE: 15-AUG-2018)
     Route: 061
  36. LOSARTAN [Concomitant]
     Active Substance: LOSARTAN
     Indication: Product used for unknown indication
     Dosage: 50 MILLIGRAM, QD
     Route: 048
  37. HYDROCORTISONE [Concomitant]
     Active Substance: HYDROCORTISONE
     Indication: Product used for unknown indication
     Dosage: 100 MILLIGRAM
     Route: 042
     Dates: start: 20160701, end: 20160902
  38. HYDROCORTISONE [Concomitant]
     Active Substance: HYDROCORTISONE
     Dosage: UNK UNK, Q3W
     Route: 042
     Dates: start: 20160701
  39. CALCIUM CARBONATE\CHOLECALCIFEROL [Concomitant]
     Active Substance: CALCIUM CARBONATE\CHOLECALCIFEROL
     Indication: Calcium deficiency
     Dosage: UNK UNK, QD (START DATE: 12-OCT-2016)
     Route: 048
  40. DOXYCYCLINE [Concomitant]
     Active Substance: DOXYCYCLINE
     Indication: Lower respiratory tract infection
     Dosage: UNK, QD (START DATE: AUG-2017)
     Route: 048

REACTIONS (7)
  - Cardiac failure [Recovered/Resolved]
  - Transient ischaemic attack [Recovered/Resolved]
  - Oral pain [Unknown]
  - Mouth swelling [Unknown]
  - Eye pain [Unknown]
  - Diarrhoea [Unknown]
  - Nausea [Unknown]

NARRATIVE: CASE EVENT DATE: 20160810
